FAERS Safety Report 4462530-6 (Version None)
Quarter: 2004Q3

REPORT INFORMATION
  Report Type: 
  Country: None (occurrence: None)
  Receive Date: 20040924
  Receipt Date: 20040909
  Transmission Date: 20050211
  Serious: Yes (Death)
  Sender: FDA-Public Use
  Company Number: 2004IC000864

PATIENT
  Age: 69 Year
  Sex: Male

DRUGS (4)
  1. FLUOROURACIL [Suspect]
     Indication: METASTASES TO LIVER
     Dosage: 250 MG; UNKNOWN; INTRA-ARTERIAL
     Route: 013
     Dates: start: 20021129, end: 20030521
  2. MITOMYCIN [Suspect]
     Indication: METASTASES TO LIVER
     Dosage: 4 MG; UNKNOWN; INTRA-ARTERIAL
     Route: 013
     Dates: start: 20021129, end: 20030521
  3. EPIRUBICIN [Suspect]
     Indication: METASTASES TO LIVER
     Dosage: 20 MG; UNKNOWN; INTRA-ARTERIAL
     Route: 013
     Dates: start: 20021129, end: 20030521
  4. TS 1 /JPN/ [Concomitant]

REACTIONS (3)
  - CHOLANGITIS SCLEROSING [None]
  - HEPATIC FUNCTION ABNORMAL [None]
  - METASTASES TO LUNG [None]
